FAERS Safety Report 9350146 (Version 2)
Quarter: 2013Q4

REPORT INFORMATION
  Report Type: Spontaneous
  Country: FR (occurrence: FR)
  Receive Date: 20130617
  Receipt Date: 20131012
  Transmission Date: 20140711
  Serious: Yes (Life-Threatening, Other)
  Sender: FDA-Public Use
  Company Number: FR-ROCHE-1237033

PATIENT
  Age: 65 Year
  Sex: Female

DRUGS (7)
  1. CELLCEPT [Suspect]
     Indication: PRODUCT USED FOR UNKNOWN INDICATION
     Route: 065
     Dates: start: 2009
  2. CELLCEPT [Suspect]
     Dosage: REDUCED DOSE
     Route: 065
     Dates: start: 20130603
  3. ARANESP [Concomitant]
     Route: 058
     Dates: start: 20130417
  4. SOLUPRED (FRANCE) [Concomitant]
     Route: 048
     Dates: start: 2009
  5. ADVAGRAF [Concomitant]
     Route: 048
     Dates: start: 2009
  6. TAHOR [Concomitant]
     Route: 048
     Dates: start: 201301, end: 20130603
  7. TARDYFERON (FRANCE) [Concomitant]
     Route: 065

REACTIONS (1)
  - Agranulocytosis [Recovered/Resolved]
